FAERS Safety Report 6585863-6 (Version None)
Quarter: 2010Q1

REPORT INFORMATION
  Report Type: 
  Country: None (occurrence: None)
  Receive Date: 20100217
  Receipt Date: 20100204
  Transmission Date: 20100710
  Serious: Yes (Other)
  Sender: FDA-Public Use
  Company Number: US-ELI_LILLY_AND_COMPANY-US201002002384

PATIENT
  Age: 40 Year
  Sex: Male

DRUGS (2)
  1. EFFIENT [Suspect]
     Dosage: 1 D/F, UNK
     Dates: start: 20100101, end: 20100101
  2. EFFIENT [Suspect]
     Dosage: 10 MG, DAILY (1/D)
     Dates: start: 20100101

REACTIONS (1)
  - DEEP VEIN THROMBOSIS [None]
